FAERS Safety Report 11893067 (Version 1)
Quarter: 2016Q1

REPORT INFORMATION
  Report Type: Spontaneous
  Country: IT (occurrence: IT)
  Receive Date: 20160106
  Receipt Date: 20160106
  Transmission Date: 20160526
  Serious: Yes (Other)
  Sender: FDA-Public Use
  Company Number: PHHY2015IT171826

PATIENT
  Age: 23 Year
  Sex: Male

DRUGS (1)
  1. ITRACONAZOLE. [Suspect]
     Active Substance: ITRACONAZOLE
     Indication: ANTIBIOTIC THERAPY
     Dosage: 200 MG, BID
     Route: 048

REACTIONS (5)
  - Condition aggravated [Unknown]
  - Skin striae [Unknown]
  - Drug ineffective [Unknown]
  - Acne [Unknown]
  - Cushingoid [Unknown]
